FAERS Safety Report 5169486-1 (Version None)
Quarter: 2006Q4

REPORT INFORMATION
  Report Type: 
  Country: None (occurrence: None)
  Receive Date: 20061204
  Receipt Date: 20061127
  Transmission Date: 20070319
  Serious: No
  Sender: FDA-Public Use
  Company Number: T05-USA-00911-01

PATIENT
  Age: 43 Year
  Sex: Female
  Weight: 76.2043 kg

DRUGS (26)
  1. LEXAPRO [Suspect]
     Indication: MAJOR DEPRESSION
     Dosage: 10 MG QD PO
     Route: 048
     Dates: start: 20040610
  2. LEXAPRO [Suspect]
     Indication: PROPHYLAXIS
     Dosage: 10 MG QD PO
     Route: 048
     Dates: start: 20040610
  3. LEXAPRO [Suspect]
     Indication: MAJOR DEPRESSION
     Dosage: 5 MG QD PO
     Route: 048
     Dates: start: 20040624, end: 20040709
  4. LEXAPRO [Suspect]
     Indication: PROPHYLAXIS
     Dosage: 5 MG QD PO
     Route: 048
     Dates: start: 20040624, end: 20040709
  5. LEXAPRO [Suspect]
     Indication: MAJOR DEPRESSION
     Dosage: 10 MG QD PO
     Route: 048
     Dates: start: 20040513, end: 20040623
  6. LEXAPRO [Suspect]
     Indication: PROPHYLAXIS
     Dosage: 10 MG QD PO
     Route: 048
     Dates: start: 20040513, end: 20040623
  7. PHENERGAN [Concomitant]
  8. VITAMIN CAP [Concomitant]
  9. CALCIUM [Concomitant]
  10. PEGASYS [Concomitant]
  11. RIBAVIRIN [Concomitant]
  12. IBUPROFEN [Concomitant]
  13. PEPTO-BISMOL (BISMUTH SUBSALICYLATE) [Concomitant]
  14. ADVIL [Concomitant]
  15. LORTAB [Concomitant]
  16. OTC ANTACID [Concomitant]
  17. DOXYCYCLINE [Concomitant]
  18. CELEBREX [Concomitant]
  19. NEXIUM [Concomitant]
  20. NAPROXEN [Concomitant]
  21. TYLENOL [Concomitant]
  22. PREVACID [Concomitant]
  23. GENERIC SLEEP AID [Concomitant]
  24. OTC ANTI-NAUSEA LIQUID [Concomitant]
  25. DICLOFENAC SODIUM [Concomitant]
  26. ULTRAM [Concomitant]

REACTIONS (16)
  - ABDOMINAL PAIN [None]
  - ADNEXA UTERI PAIN [None]
  - ANAEMIA [None]
  - ANAL FISSURE [None]
  - BACK INJURY [None]
  - BACK PAIN [None]
  - FEELING ABNORMAL [None]
  - FUNGAL INFECTION [None]
  - GENITAL RASH [None]
  - INTERVERTEBRAL DISC DEGENERATION [None]
  - LYMPHOCYTE COUNT DECREASED [None]
  - MUSCLE SPASMS [None]
  - NEUTROPHIL COUNT DECREASED [None]
  - PLATELET COUNT DECREASED [None]
  - RECTAL HAEMORRHAGE [None]
  - THROMBOSIS [None]
